FAERS Safety Report 17756466 (Version 1)
Quarter: 2020Q2

REPORT INFORMATION
  Report Type: Spontaneous
  Country: FR (occurrence: FR)
  Receive Date: 20200507
  Receipt Date: 20200507
  Transmission Date: 20200714
  Serious: Yes (Hospitalization)
  Sender: FDA-Public Use
  Company Number: FR-CADILA HEALTHCARE LIMITED-FR-ZYDUS-022717

PATIENT

DRUGS (16)
  1. AMLODIPINE [Concomitant]
     Active Substance: AMLODIPINE BESYLATE
  2. MATRIFEN [Suspect]
     Active Substance: FENTANYL
     Indication: VENOUS ULCER PAIN
     Route: 062
     Dates: start: 20160716, end: 20160717
  3. PANTOPRAZOLE [Concomitant]
     Active Substance: PANTOPRAZOLE
  4. CETIRIZINE [Concomitant]
     Active Substance: CETIRIZINE HYDROCHLORIDE
  5. SYMBICORT [Concomitant]
     Active Substance: BUDESONIDE\FORMOTEROL FUMARATE DIHYDRATE
  6. TERBUTALINE [Concomitant]
     Active Substance: TERBUTALINE
  7. IPRATROPIUM [Concomitant]
     Active Substance: IPRATROPIUM
  8. MONTELUKAST SODIQUE [Concomitant]
     Active Substance: MONTELUKAST SODIUM
  9. SKENAN [Suspect]
     Active Substance: MORPHINE SULFATE
     Indication: VENOUS ULCER PAIN
     Route: 048
     Dates: start: 201607, end: 20160717
  10. TRAMADOL. [Suspect]
     Active Substance: TRAMADOL
     Indication: VENOUS ULCER PAIN
     Route: 048
     Dates: start: 201607, end: 20160717
  11. COAPROVEL [Concomitant]
     Active Substance: HYDROCHLOROTHIAZIDE\IRBESARTAN
  12. CLOPIDOGREL [Concomitant]
     Active Substance: CLOPIDOGREL BISULFATE
  13. EBIXA [Concomitant]
     Active Substance: MEMANTINE HYDROCHLORIDE
  14. FEBUXOSTAT. [Concomitant]
     Active Substance: FEBUXOSTAT
  15. EXELON [Concomitant]
     Active Substance: RIVASTIGMINE TARTRATE
  16. AMOXICILLIN. [Suspect]
     Active Substance: AMOXICILLIN
     Indication: PRODUCT USED FOR UNKNOWN INDICATION
     Route: 048
     Dates: start: 201607, end: 20160717

REACTIONS (1)
  - Rash [Recovered/Resolved]

NARRATIVE: CASE EVENT DATE: 20160717
